FAERS Safety Report 8536215 (Version 4)
Quarter: 2012Q4

REPORT INFORMATION
  Report Type: 
  Country: JP (occurrence: JP)
  Receive Date: 20120430
  Receipt Date: 20121115
  Transmission Date: 20130627
  Serious: Yes (Hospitalization, Other)
  Sender: FDA-Public Use
  Company Number: JP-ASTRAZENECA-2012SE27145

PATIENT
  Age: 29 Year
  Sex: Male
  Weight: 64.2 kg

DRUGS (7)
  1. SEROQUEL [Suspect]
     Indication: SCHIZOPHRENIA
     Dosage: 100 MG AT 7 TABLETS 1-1-2-3 AND 25 MG 2 TABLETS BEFORE BEDTIME TOTAL DOSE 750 MG DAILY
     Route: 048
  2. SEROQUEL [Suspect]
     Indication: SCHIZOPHRENIA
     Dosage: 10 DAY DOSES AT ONCE
     Route: 048
  3. SEROQUEL [Suspect]
     Indication: SCHIZOPHRENIA
     Route: 048
  4. CALCIUM CARBONATE [Suspect]
     Indication: RENAL DISORDER
     Route: 048
     Dates: start: 20120507, end: 20120515
  5. DANTRIUM [Concomitant]
  6. RISPERDAL [Concomitant]
     Indication: SCHIZOPHRENIA
     Route: 048
     Dates: start: 20120518
  7. KALIAID [Concomitant]
     Indication: RENAL DISORDER
     Dates: start: 20120426, end: 20120507

REACTIONS (6)
  - Overdose [Unknown]
  - Depressed level of consciousness [Recovered/Resolved]
  - Hypoxic-ischaemic encephalopathy [Unknown]
  - Renal disorder [Recovered/Resolved]
  - Neuroleptic malignant syndrome [Recovered/Resolved]
  - Toxicity to various agents [Recovered/Resolved]
